FAERS Safety Report 25259098 (Version 1)
Quarter: 2025Q2

REPORT INFORMATION
  Report Type: Spontaneous
  Country: FR (occurrence: FR)
  Receive Date: 20250501
  Receipt Date: 20250501
  Transmission Date: 20250716
  Serious: Yes (Hospitalization, Disabling, Other)
  Sender: TEVA
  Company Number: FR-TEVA-VS-3317282

PATIENT
  Age: 35 Year
  Sex: Female

DRUGS (30)
  1. CHLORMADINONE [Suspect]
     Active Substance: CHLORMADINONE
     Indication: Product used for unknown indication
     Route: 065
     Dates: start: 20190615, end: 20200407
  2. IBUPROFEN [Suspect]
     Active Substance: IBUPROFEN
     Indication: Migraine
     Route: 065
  3. CYPROTERONE ACETATE [Suspect]
     Active Substance: CYPROTERONE ACETATE
     Indication: Product used for unknown indication
     Route: 065
     Dates: start: 20070412, end: 20081219
  4. ACETAMINOPHEN\CODEINE [Suspect]
     Active Substance: ACETAMINOPHEN\CODEINE
     Indication: Migraine
     Route: 065
  5. CYPROTERONE [Suspect]
     Active Substance: CYPROTERONE
     Indication: Product used for unknown indication
     Route: 065
     Dates: start: 20090204, end: 20120822
  6. NOMEGESTROL ACETATE [Suspect]
     Active Substance: NOMEGESTROL ACETATE
     Indication: Product used for unknown indication
     Route: 065
     Dates: start: 20030603, end: 20030727
  7. NOMEGESTROL ACETATE [Suspect]
     Active Substance: NOMEGESTROL ACETATE
     Indication: Product used for unknown indication
     Route: 065
     Dates: start: 20050801, end: 20070407
  8. CHLORMADINONE ACETATE [Suspect]
     Active Substance: CHLORMADINONE ACETATE
     Indication: Product used for unknown indication
     Route: 065
     Dates: start: 20200407, end: 20200625
  9. CHLORMADINONE [Suspect]
     Active Substance: CHLORMADINONE
     Indication: Product used for unknown indication
     Route: 065
     Dates: start: 20120928, end: 20190518
  10. CHLORMADINONE [Suspect]
     Active Substance: CHLORMADINONE
     Indication: Product used for unknown indication
     Route: 065
     Dates: start: 20120928, end: 20190518
  11. TETRAZEPAM [Concomitant]
     Active Substance: TETRAZEPAM
     Indication: Product used for unknown indication
     Dates: start: 20120718
  12. ZOLPIDEM [Concomitant]
     Active Substance: ZOLPIDEM TARTRATE
     Indication: Sleep disorder
  13. ZOLPIDEM TARTRATE [Concomitant]
     Active Substance: ZOLPIDEM TARTRATE
     Indication: Product used for unknown indication
     Dates: start: 20140415
  14. PERCUTALGINE [Concomitant]
     Indication: Product used for unknown indication
  15. ACETAMINOPHEN\CODEINE PHOSPHATE [Concomitant]
     Active Substance: ACETAMINOPHEN\CODEINE PHOSPHATE
     Indication: Arthralgia
     Dates: start: 20150609
  16. GINKGO EXTRACT\HEPTAMINOL\TROXERUTIN [Concomitant]
     Active Substance: GINKGO\HEPTAMINOL\TROXERUTIN
     Indication: Product used for unknown indication
     Route: 065
  17. ACETAMINOPHEN\CODEINE PHOSPHATE [Concomitant]
     Active Substance: ACETAMINOPHEN\CODEINE PHOSPHATE
     Indication: Headache
  18. DAFALGAN [Concomitant]
     Active Substance: ACETAMINOPHEN
     Indication: Sciatica
     Route: 048
     Dates: start: 20180411
  19. LAMALINE [Concomitant]
     Indication: Musculoskeletal chest pain
     Route: 065
     Dates: start: 20181214
  20. OLTARENE EMULGEL [Concomitant]
     Indication: Musculoskeletal chest pain
  21. CYPROTERONE [Concomitant]
     Active Substance: CYPROTERONE
     Indication: Product used for unknown indication
     Dates: start: 20090204, end: 20120822
  22. KETOPROFEN [Concomitant]
     Active Substance: KETOPROFEN
     Indication: Sciatica
  23. ETIFOXINE [Concomitant]
     Active Substance: ETIFOXINE
     Indication: Product used for unknown indication
     Route: 048
     Dates: start: 20200406
  24. AMITRIPTYLINE HYDROCHLORIDE [Concomitant]
     Active Substance: AMITRIPTYLINE HYDROCHLORIDE
     Indication: Headache
     Dates: start: 202107, end: 20220106
  25. ACETAMINOPHEN\OPIUM [Concomitant]
     Active Substance: ACETAMINOPHEN\OPIUM
     Indication: Product used for unknown indication
     Route: 048
     Dates: start: 20221027
  26. CARBOMER [Concomitant]
     Active Substance: CARBOMER
     Indication: Product used for unknown indication
  27. BROMAZEPAM [Concomitant]
     Active Substance: BROMAZEPAM
     Indication: Asthenia
     Route: 048
  28. FLECTOR [Concomitant]
     Active Substance: DICLOFENAC EPOLAMINE
     Indication: Arthralgia
  29. DEXAMETHASONE\OXYTETRACYCLINE [Concomitant]
     Active Substance: DEXAMETHASONE\OXYTETRACYCLINE
     Indication: Eyelid cyst
  30. ELFASETTE [Concomitant]
     Indication: Contraception
     Route: 048

REACTIONS (7)
  - Meningioma [Unknown]
  - Migraine [Unknown]
  - Asthenia [Unknown]
  - Breast pain [Unknown]
  - Insomnia [Unknown]
  - Drug ineffective [Unknown]
  - Alopecia [Unknown]

NARRATIVE: CASE EVENT DATE: 20070411
